FAERS Safety Report 5737123-0 (Version None)
Quarter: 2008Q2

REPORT INFORMATION
  Report Type: 
  Country: None (occurrence: None)
  Receive Date: 20080513
  Receipt Date: 20080513
  Transmission Date: 20081010
  Serious: Yes (Other)
  Sender: FDA-Public Use
  Company Number: None

PATIENT
  Age: 80 Year
  Sex: Male
  Weight: 102.0593 kg

DRUGS (1)
  1. DIGITEK 0.125 MYLAN BERT [Suspect]
     Indication: HEART RATE IRREGULAR
     Dosage: ONE TABLET TWICE DAILY PO
     Route: 048
     Dates: start: 20060308, end: 20080509

REACTIONS (2)
  - NAUSEA [None]
  - VERTIGO [None]
